FAERS Safety Report 23495058 (Version 1)
Quarter: 2024Q1

REPORT INFORMATION
  Report Type: Spontaneous
  Country: US (occurrence: US)
  Receive Date: 20240207
  Receipt Date: 20240207
  Transmission Date: 20240410
  Serious: Yes (Other)
  Sender: FDA-Public Use
  Company Number: US-PFIZER INC-PV202200128649

PATIENT
  Age: 92 Year
  Sex: Female

DRUGS (2)
  1. ESTRADIOL [Suspect]
     Active Substance: ESTRADIOL
     Indication: Urinary tract infection
     Dosage: 2 MG, EVERY 3 MONTHS ((7.5 MCG /24 HOUR) VAGINAL RING)
     Route: 067
     Dates: start: 20231129
  2. ESTRADIOL [Suspect]
     Active Substance: ESTRADIOL
     Indication: Genitourinary syndrome of menopause

REACTIONS (4)
  - Dementia [Unknown]
  - Physical disability [Unknown]
  - Cognitive disorder [Unknown]
  - Wheelchair user [Unknown]
